FAERS Safety Report 8130277-0 (Version None)
Quarter: 2012Q1

REPORT INFORMATION
  Report Type: 
  Country: None (occurrence: None)
  Receive Date: 20120210
  Receipt Date: 20120203
  Transmission Date: 20120608
  Serious: Yes (Death)
  Sender: FDA-Public Use
  Company Number: PHHY2012NO008251

PATIENT
  Sex: Male

DRUGS (2)
  1. TEGRETOL [Suspect]
     Dosage: 200 MG, TID
     Route: 048
     Dates: start: 20110520
  2. ZYPREXA [Concomitant]
     Indication: ANXIETY
     Dosage: 2.5 MG, PRN
     Route: 048

REACTIONS (3)
  - POISONING [None]
  - HEPATIC STEATOSIS [None]
  - DRUG LEVEL INCREASED [None]
